FAERS Safety Report 10779933 (Version 1)
Quarter: 2015Q1

REPORT INFORMATION
  Report Type: Report from Study
  Country: US (occurrence: US)
  Receive Date: 20150210
  Receipt Date: 20150210
  Transmission Date: 20150721
  Serious: Yes (Hospitalization)
  Sender: FDA-Public Use
  Company Number: PHHO2010US12163

PATIENT
  Age: 60 Year
  Sex: Female
  Weight: 55.8 kg

DRUGS (4)
  1. COMPARATOR EXEMESTANE [Suspect]
     Active Substance: EXEMESTANE
     Dosage: 25 MG, QD
     Route: 048
     Dates: start: 20100811
  2. AFINITOR [Suspect]
     Active Substance: EVEROLIMUS
     Indication: BREAST CANCER METASTATIC
     Dosage: 10 MG, QD
     Route: 048
     Dates: start: 20100519, end: 20100809
  3. AZOR [Concomitant]
     Active Substance: AMLODIPINE BESYLATE\OLMESARTAN MEDOXOMIL
     Indication: HYPERTENSION
     Route: 065
  4. COMPARATOR EXEMESTANE [Suspect]
     Active Substance: EXEMESTANE
     Indication: BREAST CANCER METASTATIC
     Dosage: 25 MG, QD
     Route: 048
     Dates: start: 20100519, end: 20100809

REACTIONS (3)
  - Tachyarrhythmia [Recovered/Resolved]
  - Dyspnoea [Recovered/Resolved]
  - Hypoxia [Recovered/Resolved]

NARRATIVE: CASE EVENT DATE: 20100805
